FAERS Safety Report 5122056-3 (Version None)
Quarter: 2006Q4

REPORT INFORMATION
  Report Type: 
  Country: None (occurrence: None)
  Receive Date: 20061004
  Receipt Date: 20061004
  Transmission Date: 20070319
  Serious: Yes (Other)
  Sender: FDA-Public Use
  Company Number: None

PATIENT
  Age: 59 Year
  Sex: Female
  Weight: 88.905 kg

DRUGS (1)
  1. DIOVAN [Suspect]
     Indication: HYPERTENSION
     Dosage: 160 MG   DAILY   PO
     Route: 048
     Dates: start: 20050401, end: 20060314

REACTIONS (8)
  - DIVERTICULITIS [None]
  - HYPERPHAGIA [None]
  - ILL-DEFINED DISORDER [None]
  - LETHARGY [None]
  - NAUSEA [None]
  - OBSESSIVE-COMPULSIVE DISORDER [None]
  - POLYDIPSIA [None]
  - WEIGHT INCREASED [None]
